FAERS Safety Report 9284715 (Version 1)
Quarter: 2013Q2

REPORT INFORMATION
  Report Type: Spontaneous
  Country: US (occurrence: US)
  Receive Date: 20130513
  Receipt Date: 20130513
  Transmission Date: 20140414
  Serious: Yes (Hospitalization)
  Sender: FDA-Public Use
  Company Number: US-BIOGENIDEC-2013BI041203

PATIENT
  Age: 44 Year
  Sex: Female

DRUGS (5)
  1. TYSABRI [Suspect]
     Indication: MULTIPLE SCLEROSIS
     Route: 042
     Dates: start: 20120913
  2. ATIVAN [Concomitant]
  3. LORTAB [Concomitant]
  4. NORVASC [Concomitant]
  5. SOMA [Concomitant]

REACTIONS (2)
  - Fall [Recovered/Resolved]
  - Blood pressure decreased [Recovered/Resolved]
